FAERS Safety Report 12171330 (Version 1)
Quarter: 2016Q1

REPORT INFORMATION
  Report Type: Spontaneous
  Country: US (occurrence: None)
  Receive Date: 20160310
  Receipt Date: 20160310
  Transmission Date: 20160526
  Serious: Yes (Disabling, Other)
  Sender: FDA-Public Use
  Company Number: None

PATIENT
  Age: 61 Year
  Sex: Female
  Weight: 74.39 kg

DRUGS (3)
  1. SODIUM CHLORIDE SOLUTION [Suspect]
     Active Substance: SODIUM CHLORIDE
     Indication: MALIGNANT MELANOMA
     Dosage: GAUZE PAD TOPICAL APPLICATION 2X A DAY ONTO CANCER SITE
     Route: 061
     Dates: start: 20160121
  2. SODIUM CHLORIDE SOLUTION [Suspect]
     Active Substance: SODIUM CHLORIDE
     Indication: SQUAMOUS CELL CARCINOMA
     Dosage: GAUZE PAD TOPICAL APPLICATION 2X A DAY ONTO CANCER SITE
     Route: 061
     Dates: start: 20160121
  3. SODIUM CHLORIDE SOLUTION [Suspect]
     Active Substance: SODIUM CHLORIDE
     Indication: SKIN CANCER
     Dosage: GAUZE PAD TOPICAL APPLICATION 2X A DAY ONTO CANCER SITE
     Route: 061
     Dates: start: 20160121

REACTIONS (6)
  - Pain [None]
  - Toxicity to various agents [None]
  - Skin exfoliation [None]
  - Peripheral swelling [None]
  - Gait disturbance [None]
  - Burning sensation [None]

NARRATIVE: CASE EVENT DATE: 20160121
